FAERS Safety Report 5920804-3 (Version None)
Quarter: 2008Q4

REPORT INFORMATION
  Report Type: 
  Country: None (occurrence: None)
  Receive Date: 20081016
  Receipt Date: 20081007
  Transmission Date: 20090506
  Serious: Yes (Other)
  Sender: FDA-Public Use
  Company Number: AT-ABBOTT-08P-008-0481656-00

PATIENT
  Age: 60 Year
  Sex: Male

DRUGS (1)
  1. TRENANTONE [Suspect]
     Indication: NEOPLASM PROSTATE
     Route: 058
     Dates: start: 20080313

REACTIONS (3)
  - INJECTION SITE PAIN [None]
  - INJECTION SITE SWELLING [None]
  - PROSTATIC SPECIFIC ANTIGEN INCREASED [None]
